FAERS Safety Report 9327088 (Version 1)
Quarter: 2013Q2

REPORT INFORMATION
  Report Type: Spontaneous
  Country: AU (occurrence: AU)
  Receive Date: 20130604
  Receipt Date: 20130604
  Transmission Date: 20140414
  Serious: Yes (Hospitalization)
  Sender: FDA-Public Use
  Company Number: PHHY2013AU054411

PATIENT
  Age: 99 Year
  Sex: Female

DRUGS (8)
  1. CLOPIDOGREL [Suspect]
     Dosage: 75 MG, QD
  2. METOPROLOL [Suspect]
  3. TEMAZEPAM [Suspect]
     Dosage: 10 MG, QD
     Dates: start: 20120416, end: 20120418
  4. ALENDRONATE SODIUM [Concomitant]
  5. AMPLIFIED CALCIUM [Concomitant]
  6. FRUSEMIDE [Concomitant]
  7. RANITIDINE [Concomitant]
  8. SPIRONOLACTONE [Concomitant]

REACTIONS (4)
  - Femur fracture [Not Recovered/Not Resolved]
  - Fall [Not Recovered/Not Resolved]
  - Laceration [Not Recovered/Not Resolved]
  - Contusion [Not Recovered/Not Resolved]
